FAERS Safety Report 23747664 (Version 1)
Quarter: 2024Q2

REPORT INFORMATION
  Report Type: Spontaneous
  Country: US (occurrence: None)
  Receive Date: 20240416
  Receipt Date: 20240416
  Transmission Date: 20240716
  Serious: No
  Sender: FDA-Public Use
  Company Number: None

PATIENT
  Age: 63 Year
  Sex: Male
  Weight: 76.3 kg

DRUGS (1)
  1. CAPECITABINE [Suspect]
     Active Substance: CAPECITABINE
     Dates: end: 20240131

REACTIONS (5)
  - Diarrhoea [None]
  - Vomiting [None]
  - Pneumonia [None]
  - Treatment noncompliance [None]
  - Nausea [None]

NARRATIVE: CASE EVENT DATE: 20240131
